FAERS Safety Report 14915750 (Version 18)
Quarter: 2019Q4

REPORT INFORMATION
  Report Type: Spontaneous
  Country: US (occurrence: US)
  Receive Date: 20180518
  Receipt Date: 20191024
  Transmission Date: 20200122
  Serious: Yes (Other)
  Sender: FDA-Public Use
  Company Number: US-ACTELION-A-US2018-171451

PATIENT
  Age: 66 Year
  Sex: Female
  Weight: 74.83 kg

DRUGS (4)
  1. AMLODIPINE [Concomitant]
     Active Substance: AMLODIPINE BESYLATE
  2. ADEMPAS [Suspect]
     Active Substance: RIOCIGUAT
     Indication: PRODUCT USED FOR UNKNOWN INDICATION
     Route: 048
  3. OPSUMIT [Suspect]
     Active Substance: MACITENTAN
     Indication: PULMONARY ARTERIAL HYPERTENSION
     Dosage: 10 MG, QD
     Route: 048
  4. OPSUMIT [Suspect]
     Active Substance: MACITENTAN
     Dosage: 10 MG, QD
     Route: 048
     Dates: start: 20180303

REACTIONS (37)
  - Pollakiuria [Unknown]
  - Unevaluable event [Unknown]
  - Polyuria [Unknown]
  - Macular degeneration [Unknown]
  - Pyrexia [Unknown]
  - Chills [Unknown]
  - Weight decreased [Unknown]
  - Dyspnoea [Unknown]
  - Eye infection [Unknown]
  - Influenza [Unknown]
  - Abdominal pain upper [Unknown]
  - Pain in extremity [Unknown]
  - Sneezing [Unknown]
  - Fatigue [Unknown]
  - Gait disturbance [Recovering/Resolving]
  - Malaise [Unknown]
  - Posture abnormal [Unknown]
  - Swelling [Unknown]
  - Headache [Unknown]
  - Therapy non-responder [Unknown]
  - Nausea [Unknown]
  - Condition aggravated [Unknown]
  - Decreased appetite [Unknown]
  - Product dose omission [Unknown]
  - Vitrectomy [Unknown]
  - Productive cough [Unknown]
  - Dyspnoea exertional [Unknown]
  - Dizziness [Unknown]
  - Presyncope [Unknown]
  - Cough [Unknown]
  - Uveitis [Unknown]
  - Diarrhoea [Unknown]
  - Macular cyst [Unknown]
  - Anaemia [Unknown]
  - Drug ineffective [Unknown]
  - Throat irritation [Unknown]
  - Bacterial infection [Unknown]

NARRATIVE: CASE EVENT DATE: 201806
